FAERS Safety Report 15001384 (Version 1)
Quarter: 2018Q2

REPORT INFORMATION
  Report Type: Spontaneous
  Country: JP (occurrence: JP)
  Receive Date: 20180612
  Receipt Date: 20180612
  Transmission Date: 20180711
  Serious: Yes (Hospitalization, Other)
  Sender: FDA-Public Use
  Company Number: JP-DSJP-DSJ-2018-123062

PATIENT

DRUGS (2)
  1. LIXIANA TABLETS 30MG [Suspect]
     Active Substance: EDOXABAN TOSYLATE
     Indication: PRODUCT USED FOR UNKNOWN INDICATION
     Dosage: 30 MG, QD
     Route: 048
  2. VASOLAN                            /00014302/ [Interacting]
     Active Substance: VERAPAMIL HYDROCHLORIDE
     Dosage: UNK, BID
     Route: 048

REACTIONS (1)
  - Cardiac failure [Recovered/Resolved]
